FAERS Safety Report 6664253-1 (Version None)
Quarter: 2010Q2

REPORT INFORMATION
  Report Type: 
  Country: None (occurrence: None)
  Receive Date: 20100401
  Receipt Date: 20100322
  Transmission Date: 20101027
  Serious: Yes (Other)
  Sender: FDA-Public Use
  Company Number: PHHY2010DE18119

PATIENT
  Sex: Female

DRUGS (11)
  1. RASILEZ [Suspect]
     Dosage: 150 MG DAILY
     Route: 048
  2. EXFORGE HCT [Suspect]
     Dosage: ONE TABLET IN THE MORNING
     Route: 048
  3. EXFORGE [Suspect]
     Dosage: ONE TABLET IN THE NIGHT
     Route: 048
  4. ASPIRIN [Concomitant]
     Dosage: 100 MG, QD
     Route: 048
  5. CLOPIDOGREL BISULFATE [Concomitant]
     Dosage: 75 MG, QD
     Route: 048
  6. DOXEPIN HCL [Concomitant]
     Dosage: 50 MG, QHS
     Route: 048
  7. BELOC ZOK [Concomitant]
     Dosage: ONE IN THE MORNING AND ONE IN THE EVENING
     Route: 048
  8. MOXONIDINE [Concomitant]
     Dosage: 0.3 MG, BID
     Route: 048
  9. ALDACTONE [Concomitant]
     Dosage: 50 MG, QD
     Route: 048
  10. SIMVASTATIN [Concomitant]
     Dosage: 40 MG, QHS
     Route: 048
  11. EBRANTIL [Concomitant]
     Dosage: ON E TABLET IN THE MORNING AND HALF TABLET AT NIGHT
     Route: 048

REACTIONS (1)
  - RENAL FAILURE ACUTE [None]
